FAERS Safety Report 7007041-9 (Version None)
Quarter: 2010Q3

REPORT INFORMATION
  Report Type: 
  Country: None (occurrence: None)
  Receive Date: 20100922
  Receipt Date: 20100907
  Transmission Date: 20110219
  Serious: Yes (Life-Threatening, Hospitalization)
  Sender: FDA-Public Use
  Company Number: CA-B.I. PHARMACEUTICALS,INC./RIDGEFIELD-2010-DE-04928GD

PATIENT
  Age: 63 Year
  Sex: Male
  Weight: 150.7 kg

DRUGS (6)
  1. PRAMIPEXOLE [Suspect]
     Indication: PARKINSON'S DISEASE
     Dosage: 1.5 MG TABLETS DISSOLVED IN 30 ML WATER, 4 TIMES DAILY
  2. CARBIDOPA AND LEVODOPA [Suspect]
     Indication: PARKINSON'S DISEASE
     Dosage: 100 MG/25 MG TABLET, 1.5 TABLETS DISSOLVED IN 30 ML WATER, 4 TIMES DAILY
  3. RESOURCE DIABETIC ENTERAL FEED [Suspect]
     Indication: DIABETIC DIET
  4. ENTACAPONE [Concomitant]
     Indication: PARKINSON'S DISEASE
     Dosage: 200 MG TABLET DISSOLVED IN 30 ML WATER 4 TIMES DAILY
  5. HEPARIN [Concomitant]
  6. TICARCILLIN/CLAVULANIC ACID [Concomitant]
     Indication: PNEUMONIA

REACTIONS (7)
  - BLOOD CREATINE PHOSPHOKINASE INCREASED [None]
  - FOOD INTERACTION [None]
  - LEUKOCYTOSIS [None]
  - MENTAL IMPAIRMENT [None]
  - NEUROLEPTIC MALIGNANT SYNDROME [None]
  - PYREXIA [None]
  - RENAL IMPAIRMENT [None]
